FAERS Safety Report 8076629-9 (Version None)
Quarter: 2012Q1

REPORT INFORMATION
  Report Type: 
  Country: None (occurrence: None)
  Receive Date: 20120127
  Receipt Date: 20120119
  Transmission Date: 20120608
  Serious: Yes (Other)
  Sender: FDA-Public Use
  Company Number: US-BAYER-2011-100973

PATIENT
  Age: 17 Year
  Sex: Female
  Weight: 77.098 kg

DRUGS (8)
  1. YASMIN [Suspect]
     Indication: CONTRACEPTION
     Dosage: UNK
     Route: 048
     Dates: start: 20030101, end: 20090101
  2. DROSPIRENONE AND ETHINYL ESTRADIOL [Suspect]
     Indication: CONTRACEPTION
     Dosage: UNK
     Route: 048
     Dates: start: 20030101, end: 20090101
  3. VICODIN [Concomitant]
  4. PEPCID [Concomitant]
  5. MAGNESIUM HYDROXIDE TAB [Concomitant]
  6. ZANTAC [Concomitant]
  7. ALBUTEROL [Concomitant]
  8. ACIFED [Concomitant]

REACTIONS (3)
  - CHOLECYSTITIS CHRONIC [None]
  - GALLBLADDER DISORDER [None]
  - PAIN [None]
